FAERS Safety Report 12012841 (Version 3)
Quarter: 2016Q3

REPORT INFORMATION
  Report Type: Spontaneous
  Country: JP (occurrence: JP)
  Receive Date: 20160205
  Receipt Date: 20160830
  Transmission Date: 20161109
  Serious: Yes (Hospitalization)
  Sender: FDA-Public Use
  Company Number: JP-MALLINCKRODT-T201600345

PATIENT
  Age: 53 Year
  Sex: Female
  Weight: 46 kg

DRUGS (102)
  1. METHADONE [Suspect]
     Active Substance: METHADONE HYDROCHLORIDE
     Dosage: 10 MG (20 MG DAILY DOSE)
     Route: 048
     Dates: start: 20140714, end: 20140716
  2. METHADONE [Suspect]
     Active Substance: METHADONE HYDROCHLORIDE
     Dosage: 30 MG (90 MG DAILY DOSE)
     Route: 048
     Dates: start: 20140812, end: 20141009
  3. OXIFAST [Concomitant]
     Active Substance: OXYCODONE
     Dosage: 20 MG, PRN
     Route: 051
     Dates: start: 20140611
  4. OXIFAST [Concomitant]
     Active Substance: OXYCODONE
     Dosage: 450 MG
     Route: 051
     Dates: start: 20140606, end: 20140606
  5. TAKEPRON [Concomitant]
     Active Substance: LANSOPRAZOLE
     Dosage: 15 MG
     Route: 048
     Dates: start: 20140615, end: 20140714
  6. RIVOTRIL [Concomitant]
     Active Substance: CLONAZEPAM
     Dosage: 1 MG
     Route: 048
     Dates: start: 20140623, end: 20140627
  7. OLIVES [Concomitant]
     Active Substance: LIDOCAINE HYDROCHLORIDE
     Dosage: 480 MG
     Route: 051
     Dates: start: 20141009, end: 20141013
  8. ROCEPHIN [Concomitant]
     Active Substance: CEFTRIAXONE SODIUM
     Dosage: 1 G
     Route: 042
     Dates: start: 20141017, end: 20141024
  9. METHADONE [Suspect]
     Active Substance: METHADONE HYDROCHLORIDE
     Dosage: 25 MG (75 MG DAILY DOSE)
     Route: 048
     Dates: start: 20140806, end: 20140811
  10. METHADONE [Suspect]
     Active Substance: METHADONE HYDROCHLORIDE
     Dosage: 20 MG (60 MG DAILY DOSE)
     Route: 048
     Dates: start: 20141027, end: 20141115
  11. METHADONE [Suspect]
     Active Substance: METHADONE HYDROCHLORIDE
     Dosage: 25 MG (75 MG DAILY DOSE)
     Route: 048
     Dates: start: 20141115
  12. OXINORM [Concomitant]
     Active Substance: OXYCODONE HYDROCHLORIDE
     Indication: ANALGESIC THERAPY
     Dosage: 40 MG, PRN
     Route: 048
     Dates: start: 20140513
  13. OXIFAST [Concomitant]
     Active Substance: OXYCODONE
     Indication: ANALGESIC THERAPY
     Dosage: 200 MG
     Route: 051
     Dates: start: 20140604, end: 20140605
  14. TAKEPRON [Concomitant]
     Active Substance: LANSOPRAZOLE
     Dosage: 15 MG
     Route: 048
     Dates: end: 20140605
  15. ALOSENN [Concomitant]
     Active Substance: SENNA LEAF
     Dosage: 1.5 MG
     Route: 048
     Dates: end: 20140605
  16. BFLUID [Concomitant]
     Active Substance: AMINO ACIDS\DEXTROSE\ELECTROLYTES NOS\VITAMINS
     Dosage: 500 ML
     Route: 051
     Dates: start: 20140516, end: 20140516
  17. MIDAZOLAM [Concomitant]
     Active Substance: MIDAZOLAM\MIDAZOLAM HYDROCHLORIDE
     Dosage: 20 MG
     Route: 051
     Dates: start: 20141010, end: 20141011
  18. OLIVES [Concomitant]
     Active Substance: LIDOCAINE HYDROCHLORIDE
     Dosage: 750 MG
     Route: 051
     Dates: start: 20140607, end: 20140622
  19. OLIVES [Concomitant]
     Active Substance: LIDOCAINE HYDROCHLORIDE
     Dosage: 960 MG
     Route: 051
     Dates: start: 20141014, end: 20141023
  20. MEXILETINE HYDROCHLORIDE. [Concomitant]
     Active Substance: MEXILETINE HYDROCHLORIDE
     Indication: ANALGESIC THERAPY
     Dosage: 300 MG
     Route: 048
     Dates: start: 20140627
  21. KETALAR [Concomitant]
     Active Substance: KETAMINE HYDROCHLORIDE
     Dosage: 480 MG
     Route: 042
     Dates: start: 20141101
  22. TRAMAL [Concomitant]
     Active Substance: TRAMADOL
     Dosage: 200 MG
     Route: 048
     Dates: start: 20140716, end: 20141008
  23. ALLOID [Concomitant]
     Dosage: 60 ML
     Route: 048
     Dates: start: 20140702, end: 20141008
  24. LASIX [Concomitant]
     Active Substance: FUROSEMIDE
     Dosage: 10 MG
     Route: 051
     Dates: start: 20141013
  25. OXIFAST [Concomitant]
     Active Substance: OXYCODONE
     Dosage: 370 MG
     Route: 051
     Dates: start: 20140723, end: 20140730
  26. OXIFAST [Concomitant]
     Active Substance: OXYCODONE
     Dosage: 300 MG
     Route: 051
     Dates: start: 20140825, end: 20141008
  27. FENTOS [Concomitant]
     Active Substance: FENTANYL
     Dosage: 24 MG
     Route: 062
     Dates: start: 20141028
  28. BFLUID [Concomitant]
     Active Substance: AMINO ACIDS\DEXTROSE\ELECTROLYTES NOS\VITAMINS
     Dosage: 500 ML
     Route: 051
     Dates: start: 20140604, end: 20140604
  29. BFLUID [Concomitant]
     Active Substance: AMINO ACIDS\DEXTROSE\ELECTROLYTES NOS\VITAMINS
     Dosage: 1000 ML
     Route: 051
     Dates: start: 20140826, end: 20140827
  30. MIDAZOLAM [Concomitant]
     Active Substance: MIDAZOLAM\MIDAZOLAM HYDROCHLORIDE
     Dosage: 10 MG
     Route: 051
     Dates: start: 20140604, end: 20140614
  31. MIDAZOLAM [Concomitant]
     Active Substance: MIDAZOLAM\MIDAZOLAM HYDROCHLORIDE
     Dosage: 30 MG
     Route: 051
     Dates: start: 20141012, end: 20141013
  32. RANITIDINE. [Concomitant]
     Active Substance: RANITIDINE
     Dosage: 100 MG
     Route: 051
     Dates: start: 20141008, end: 20141024
  33. KETALAR [Concomitant]
     Active Substance: KETAMINE HYDROCHLORIDE
     Dosage: 50 MG
     Route: 051
     Dates: start: 20140806, end: 20140808
  34. ELNEOPA NO.2 [Concomitant]
     Active Substance: AMINO ACIDS\CARBOHYDRATES\ELECTROLYTES NOS\VITAMINS
     Dosage: 1000 ML
     Route: 051
     Dates: start: 20141009
  35. METHADONE [Suspect]
     Active Substance: METHADONE HYDROCHLORIDE
     Dosage: 20 MG (40 MG DAILY DOSE)
     Route: 048
     Dates: start: 20140723, end: 20140724
  36. METHADONE [Suspect]
     Active Substance: METHADONE HYDROCHLORIDE
     Dosage: 20 MG (60 MG DAILY DOSE)
     Route: 048
     Dates: start: 20140730, end: 20140805
  37. OXIFAST [Concomitant]
     Active Substance: OXYCODONE
     Dosage: 400 MG
     Route: 051
     Dates: start: 20140707, end: 20140722
  38. FENTOS [Concomitant]
     Active Substance: FENTANYL
     Indication: ANALGESIC THERAPY
     Dosage: 18 MG
     Route: 062
     Dates: end: 20141015
  39. MUCOSTA [Concomitant]
     Active Substance: REBAMIPIDE
     Dosage: 300 MG
     Route: 048
     Dates: start: 20140715, end: 20141008
  40. FLUNITRAZEPAM [Concomitant]
     Active Substance: FLUNITRAZEPAM
     Dosage: 1 MG
     Route: 048
     Dates: start: 20140616, end: 20141008
  41. RIVOTRIL [Concomitant]
     Active Substance: CLONAZEPAM
     Indication: ANALGESIC THERAPY
     Dosage: 1.0 MG
     Route: 048
     Dates: end: 20140605
  42. BFLUID [Concomitant]
     Active Substance: AMINO ACIDS\DEXTROSE\ELECTROLYTES NOS\VITAMINS
     Dosage: 500 ML
     Route: 051
     Dates: start: 20140828, end: 20140828
  43. MIDAZOLAM [Concomitant]
     Active Substance: MIDAZOLAM\MIDAZOLAM HYDROCHLORIDE
     Dosage: 40 MG
     Route: 051
     Dates: start: 20141014
  44. LINTON [Concomitant]
     Active Substance: HALOPERIDOL
     Dosage: 5 MG
     Route: 051
     Dates: start: 20141010
  45. KETALAR [Concomitant]
     Active Substance: KETAMINE HYDROCHLORIDE
     Dosage: 100 MG
     Route: 051
     Dates: start: 20140630, end: 20140805
  46. KETALAR [Concomitant]
     Active Substance: KETAMINE HYDROCHLORIDE
     Dosage: 480 MG
     Route: 042
     Dates: start: 20141012, end: 20141028
  47. ELNEOPA NO.1 [Concomitant]
     Dosage: 1000 ML
     Route: 051
     Dates: start: 20140605, end: 20140904
  48. PARIET [Concomitant]
     Active Substance: RABEPRAZOLE SODIUM
     Dosage: 10 MG
     Route: 048
     Dates: start: 20141027
  49. METHADONE [Suspect]
     Active Substance: METHADONE HYDROCHLORIDE
     Dosage: 10 MG (30 MG DAILY DOSE)
     Route: 048
     Dates: start: 20141016, end: 20141024
  50. TAKEPRON [Concomitant]
     Active Substance: LANSOPRAZOLE
     Dosage: 60 MG
     Route: 042
     Dates: start: 20140604, end: 20140606
  51. ACOFIDE [Concomitant]
     Active Substance: ACOTIAMIDE HYDROCHLORIDE
     Dosage: 300 MG
     Route: 048
     Dates: end: 20140605
  52. OLIVES [Concomitant]
     Active Substance: LIDOCAINE HYDROCHLORIDE
     Indication: ANALGESIC THERAPY
     Dosage: 500 MG
     Route: 051
     Dates: start: 20140605, end: 20140606
  53. PARIET [Concomitant]
     Active Substance: RABEPRAZOLE SODIUM
     Dosage: 10 MG
     Route: 048
     Dates: start: 20141003, end: 20141008
  54. METHADONE [Suspect]
     Active Substance: METHADONE HYDROCHLORIDE
     Dosage: 10 MG (30 MG DAILY DOSE)
     Route: 048
     Dates: start: 20140528, end: 20140603
  55. METHADONE [Suspect]
     Active Substance: METHADONE HYDROCHLORIDE
     Dosage: 15 MG (45 MG DAILY DOSE)
     Route: 048
     Dates: start: 20140725, end: 20140729
  56. FENTANYL CITRATE. [Concomitant]
     Active Substance: FENTANYL CITRATE
     Dosage: 0.3 MG, PRN
     Route: 051
     Dates: start: 20140516, end: 20140516
  57. FENTOS [Concomitant]
     Active Substance: FENTANYL
     Dosage: 22 MG
     Route: 062
     Dates: start: 20141016, end: 20141027
  58. MUCOSTA [Concomitant]
     Active Substance: REBAMIPIDE
     Dosage: 300 MG
     Route: 048
     Dates: end: 20140605
  59. FLUNITRAZEPAM [Concomitant]
     Active Substance: FLUNITRAZEPAM
     Dosage: 1 MG
     Route: 048
     Dates: end: 20140605
  60. FUROSEMIDE. [Concomitant]
     Active Substance: FUROSEMIDE
     Dosage: 20 MG
     Route: 048
     Dates: start: 20140630, end: 20141008
  61. LINTON [Concomitant]
     Active Substance: HALOPERIDOL
     Dosage: 5 MG
     Route: 051
     Dates: start: 20140604, end: 20140614
  62. OLIVES [Concomitant]
     Active Substance: LIDOCAINE HYDROCHLORIDE
     Dosage: 720 MG
     Route: 051
     Dates: start: 20141024, end: 20141025
  63. KETALAR [Concomitant]
     Active Substance: KETAMINE HYDROCHLORIDE
     Indication: ANALGESIC THERAPY
     Dosage: 50 MG
     Route: 051
     Dates: start: 20140605, end: 20140606
  64. KETALAR [Concomitant]
     Active Substance: KETAMINE HYDROCHLORIDE
     Dosage: 100 MG
     Route: 051
     Dates: start: 20140607, end: 20140626
  65. KETALAR [Concomitant]
     Active Substance: KETAMINE HYDROCHLORIDE
     Dosage: 240 MG
     Route: 042
     Dates: start: 20141030, end: 20141030
  66. ELNEOPA NO.1 [Concomitant]
     Dosage: 1000 ML
     Route: 051
     Dates: start: 20141008, end: 20141024
  67. PARIET [Concomitant]
     Active Substance: RABEPRAZOLE SODIUM
     Dosage: 10 MG
     Route: 048
     Dates: start: 20140715, end: 20141008
  68. L CARTIN FF [Concomitant]
     Active Substance: LEVOCARNITINE
     Dosage: 1000 MG
     Route: 042
     Dates: start: 20140605, end: 20140704
  69. L CARTIN FF [Concomitant]
     Active Substance: LEVOCARNITINE
     Dosage: 200 MG
     Route: 042
     Dates: start: 20140901, end: 20140909
  70. AMINOLEBAN [Concomitant]
     Active Substance: AMINO ACIDS
     Dosage: 200 ML
     Route: 042
     Dates: start: 20140901, end: 20140909
  71. CARNITINE CHLORIDE [Concomitant]
     Dosage: 900 MG
     Route: 048
     Dates: start: 20140908, end: 20141008
  72. SANDOSTATIN [Concomitant]
     Active Substance: OCTREOTIDE ACETATE
     Dosage: 300 ?G
     Route: 051
     Dates: start: 20141014
  73. METHADONE [Suspect]
     Active Substance: METHADONE HYDROCHLORIDE
     Indication: CANCER PAIN
     Dosage: 5 MG (15 MG DAILY DOSE)
     Route: 048
     Dates: start: 20140514, end: 20140528
  74. METHADONE [Suspect]
     Active Substance: METHADONE HYDROCHLORIDE
     Dosage: 5 MG (15 MG DAILY DOSE)
     Route: 048
     Dates: start: 20140707, end: 20140714
  75. LYRICA [Concomitant]
     Active Substance: PREGABALIN
     Indication: ANALGESIC THERAPY
     Dosage: 150 MG
     Route: 048
     Dates: end: 20140605
  76. LYRICA [Concomitant]
     Active Substance: PREGABALIN
     Dosage: 300 MG
     Route: 048
     Dates: start: 20140627, end: 20141008
  77. KETALAR [Concomitant]
     Active Substance: KETAMINE HYDROCHLORIDE
     Dosage: 360 MG
     Route: 042
     Dates: start: 20141031, end: 20141031
  78. LACTEC [Concomitant]
     Active Substance: CALCIUM CHLORIDE ANHYDROUS\POTASSIUM CHLORIDE\SODIUM CHLORIDE\SODIUM LACTATE
     Dosage: 500 ML
     Route: 051
     Dates: start: 20140604, end: 20140604
  79. ENEVO [Concomitant]
     Dosage: 1 DF
     Route: 048
     Dates: start: 20140630, end: 20141008
  80. LACTULOSE. [Concomitant]
     Active Substance: LACTULOSE
     Dosage: 60 ML
     Route: 048
     Dates: start: 20140908, end: 20140908
  81. METHADONE [Suspect]
     Active Substance: METHADONE HYDROCHLORIDE
     Dosage: 10 MG (30 MG DAILY DOSE)
     Route: 048
     Dates: start: 20140717, end: 20140722
  82. METHADONE [Suspect]
     Active Substance: METHADONE HYDROCHLORIDE
     Dosage: 15 MG (45 MG DAILY DOSE)
     Route: 048
     Dates: start: 20141025, end: 20141027
  83. FENTANYL CITRATE. [Concomitant]
     Active Substance: FENTANYL CITRATE
     Indication: ANALGESIC THERAPY
     Dosage: 400 - 800 MCG, PRN
     Route: 002
     Dates: start: 20140513
  84. OXIFAST [Concomitant]
     Active Substance: OXYCODONE
     Dosage: 350 MG
     Route: 051
     Dates: start: 20140731, end: 20140825
  85. OXIFAST [Concomitant]
     Active Substance: OXYCODONE
     Dosage: 350-450 MG
     Route: 051
     Dates: start: 20141009
  86. BAYASPIRIN [Concomitant]
     Active Substance: ASPIRIN
     Dosage: 200 MG
     Route: 048
     Dates: end: 20140605
  87. PAMILCON [Concomitant]
     Active Substance: GLYBURIDE
     Dosage: 2.5 MG
     Route: 048
     Dates: end: 20140605
  88. LYRICA [Concomitant]
     Active Substance: PREGABALIN
     Dosage: 150 MG
     Route: 048
     Dates: start: 20140623, end: 20140627
  89. FUROSEMIDE. [Concomitant]
     Active Substance: FUROSEMIDE
     Dosage: 20 MG
     Route: 048
     Dates: start: 20140528, end: 20140605
  90. OLIVES [Concomitant]
     Active Substance: LIDOCAINE HYDROCHLORIDE
     Dosage: 500 MG
     Route: 051
     Dates: start: 20140623, end: 20140627
  91. GASMOTIN [Concomitant]
     Active Substance: MOSAPRIDE CITRATE
     Dosage: 15 MG
     Route: 048
     Dates: start: 20140623, end: 20141008
  92. RANITIDINE. [Concomitant]
     Active Substance: RANITIDINE
     Dosage: 100 MG
     Route: 051
     Dates: start: 20140607, end: 20140614
  93. RANITIDINE. [Concomitant]
     Active Substance: RANITIDINE
     Dosage: 100 MG
     Route: 051
     Dates: start: 20140903, end: 20140909
  94. KETALAR [Concomitant]
     Active Substance: KETAMINE HYDROCHLORIDE
     Dosage: 50 MG
     Route: 051
     Dates: start: 20140627, end: 20140629
  95. KETALAR [Concomitant]
     Active Substance: KETAMINE HYDROCHLORIDE
     Dosage: 120 MG
     Route: 042
     Dates: start: 20141009, end: 20141010
  96. KETALAR [Concomitant]
     Active Substance: KETAMINE HYDROCHLORIDE
     Dosage: 360 MG
     Route: 042
     Dates: start: 20141011, end: 20141011
  97. KETALAR [Concomitant]
     Active Substance: KETAMINE HYDROCHLORIDE
     Dosage: 360 MG
     Route: 042
     Dates: start: 20141029, end: 20141029
  98. TRAMAL [Concomitant]
     Active Substance: TRAMADOL
     Indication: ANALGESIC THERAPY
     Dosage: 100 MG
     Route: 048
     Dates: start: 20140710, end: 20140716
  99. L CARTIN FF [Concomitant]
     Active Substance: LEVOCARNITINE
     Dosage: 1000 MG
     Route: 042
     Dates: start: 20141008, end: 20141024
  100. DAIVITAMIX [Concomitant]
     Dosage: 2 ML
     Route: 051
     Dates: start: 20140826, end: 20140827
  101. PHYSIO 35 [Concomitant]
     Active Substance: ELECTROLYTES NOS
     Dosage: 500 ML
     Route: 051
     Dates: start: 20140901, end: 20140905
  102. HICALIQ RF [Concomitant]
     Active Substance: CALCIUM GLUCONATE\DEXTROSE\MAGNESIUM SULFATE\POTASSIUM ACETATE\POTASSIUM PHOSPHATE, DIBASIC\ZINC SULFATE
     Dosage: 250 ML
     Route: 051
     Dates: start: 20140903, end: 20140909

REACTIONS (3)
  - Peritonitis [Recovering/Resolving]
  - Asthma [Recovering/Resolving]
  - Intestinal obstruction [Recovering/Resolving]

NARRATIVE: CASE EVENT DATE: 20140604
